FAERS Safety Report 14150985 (Version 1)
Quarter: 2017Q4

REPORT INFORMATION
  Report Type: Spontaneous
  Country: MX (occurrence: MX)
  Receive Date: 20171102
  Receipt Date: 20171102
  Transmission Date: 20180321
  Serious: Yes (Other)
  Sender: FDA-Public Use
  Company Number: MX-ASTRAZENECA-2017SF10883

PATIENT
  Age: 49 Year
  Sex: Female

DRUGS (5)
  1. PALBOCICLIB [Concomitant]
     Active Substance: PALBOCICLIB
     Dosage: 125.0MG UNKNOWN
     Dates: start: 20161116
  2. FASLODEX [Concomitant]
     Active Substance: FULVESTRANT
     Indication: BREAST CANCER METASTATIC
     Route: 030
     Dates: start: 20161116
  3. PALBOCICLIB [Concomitant]
     Active Substance: PALBOCICLIB
     Dosage: 100.0MG UNKNOWN
     Dates: start: 201706
  4. DENOSUMAB [Concomitant]
     Active Substance: DENOSUMAB
     Dosage: 120.0MG UNKNOWN
     Dates: start: 20161116
  5. ARIMIDEX [Suspect]
     Active Substance: ANASTROZOLE
     Indication: BREAST CANCER METASTATIC
     Route: 048
     Dates: start: 20160301

REACTIONS (3)
  - Metastases to central nervous system [Unknown]
  - Metastases to bone [Unknown]
  - Neutropenia [Recovering/Resolving]

NARRATIVE: CASE EVENT DATE: 201611
